FAERS Safety Report 15007550 (Version 1)
Quarter: 2018Q2

REPORT INFORMATION
  Report Type: Other
  Country: CA (occurrence: CA)
  Receive Date: 20180613
  Receipt Date: 20180613
  Transmission Date: 20180711
  Serious: Yes (Hospitalization, Other)
  Sender: FDA-Public Use
  Company Number: CA-APOTEX-2018AP015323

PATIENT
  Age: 21 Year
  Sex: Male

DRUGS (1)
  1. OLANZAPINE. [Suspect]
     Active Substance: OLANZAPINE
     Indication: BIPOLAR DISORDER
     Dosage: UNK, QD
     Route: 060

REACTIONS (5)
  - Product substitution issue [Recovered/Resolved]
  - Bipolar disorder [Recovered/Resolved]
  - Aggression [Recovered/Resolved]
  - Chest pain [Recovered/Resolved]
  - Vomiting [Recovered/Resolved]
